FAERS Safety Report 16072982 (Version 1)
Quarter: 2019Q1

REPORT INFORMATION
  Report Type: Spontaneous
  Country: US (occurrence: US)
  Receive Date: 20190213
  Receipt Date: 20190213
  Transmission Date: 20190418
  Serious: No
  Sender: FDA-Public Use
  Company Number: None

PATIENT
  Age: 68 Year
  Sex: Female
  Weight: 65.77 kg

DRUGS (4)
  1. ATORVASTATIN 20MG [Suspect]
     Active Substance: ATORVASTATIN
     Indication: BLOOD CHOLESTEROL INCREASED
     Dosage: ?          OTHER FREQUENCY:ONCE NIGHTLY;?
     Route: 048
     Dates: start: 201811
  2. AMBIEN [Concomitant]
     Active Substance: ZOLPIDEM TARTRATE
  3. PROTONIX [Concomitant]
     Active Substance: PANTOPRAZOLE SODIUM
  4. ZYRTEC [Concomitant]
     Active Substance: CETIRIZINE HYDROCHLORIDE

REACTIONS (3)
  - Neuropathy peripheral [None]
  - Pain in extremity [None]
  - Myalgia [None]

NARRATIVE: CASE EVENT DATE: 201811
